FAERS Safety Report 14322885 (Version 3)
Quarter: 2018Q2

REPORT INFORMATION
  Report Type: Report from Study
  Country: None (occurrence: US)
  Receive Date: 20171226
  Receipt Date: 20180506
  Transmission Date: 20180711
  Serious: Yes (Other)
  Sender: FDA-Public Use
  Company Number: US-ABBVIE-17K-163-2185150-00

PATIENT
  Age: 48 Year
  Sex: Male
  Weight: 97.16 kg

DRUGS (1)
  1. HUMIRA [Suspect]
     Active Substance: ADALIMUMAB
     Indication: PSORIASIS
     Route: 058
     Dates: start: 201605

REACTIONS (5)
  - Skin lesion [Recovering/Resolving]
  - Impaired healing [Recovering/Resolving]
  - Basal cell carcinoma [Not Recovered/Not Resolved]
  - Procedural pain [Unknown]
  - Psoriasis [Unknown]

NARRATIVE: CASE EVENT DATE: 2017
